FAERS Safety Report 24599565 (Version 3)
Quarter: 2024Q4

REPORT INFORMATION
  Report Type: Spontaneous
  Country: US (occurrence: US)
  Receive Date: 20241110
  Receipt Date: 20241230
  Transmission Date: 20250115
  Serious: No
  Sender: SANOFI AVENTIS
  Company Number: US-SA-2024SA322558

PATIENT
  Age: 61 Year
  Sex: Female

DRUGS (2)
  1. KEVZARA [Suspect]
     Active Substance: SARILUMAB
     Indication: Polymyalgia rheumatica
     Dosage: 200 MG, QOW
     Route: 058
     Dates: start: 20241018, end: 20241204
  2. PREDNISONE [Concomitant]
     Active Substance: PREDNISONE
     Dosage: 10 MG, QD

REACTIONS (5)
  - Back pain [Recovered/Resolved]
  - Musculoskeletal chest pain [Recovered/Resolved]
  - Muscle spasms [Recovered/Resolved]
  - Pain [Recovered/Resolved]
  - Throat tightness [Recovered/Resolved]

NARRATIVE: CASE EVENT DATE: 20240101
